FAERS Safety Report 13664199 (Version 2)
Quarter: 2017Q2

REPORT INFORMATION
  Report Type: Spontaneous
  Country: US (occurrence: US)
  Receive Date: 20170619
  Receipt Date: 20170620
  Transmission Date: 20170830
  Serious: Yes (Other)
  Sender: FDA-Public Use
  Company Number: US-JNJFOC-20170610877

PATIENT
  Sex: Male

DRUGS (1)
  1. ZYTIGA [Suspect]
     Active Substance: ABIRATERONE ACETATE
     Indication: PROSTATE CANCER
     Route: 048

REACTIONS (6)
  - Product use complaint [Unknown]
  - Inappropriate schedule of drug administration [Unknown]
  - Gastric cancer [Unknown]
  - Productive cough [Unknown]
  - Wrong technique in product usage process [Unknown]
  - Retching [Unknown]

NARRATIVE: CASE EVENT DATE: 2017
